FAERS Safety Report 5426887-1 (Version None)
Quarter: 2007Q3

REPORT INFORMATION
  Report Type: 
  Country: None (occurrence: None)
  Receive Date: 20070827
  Receipt Date: 20070822
  Transmission Date: 20080115
  Serious: Yes (Death)
  Sender: FDA-Public Use
  Company Number: FR-BOEHRINGER INGELHEIM PHARMACEUTICALS, INC.-2007-FF-00852FF

PATIENT
  Sex: Female

DRUGS (1)
  1. SPIRIVA [Suspect]
     Indication: EMPHYSEMA
     Route: 055

REACTIONS (2)
  - BRONCHOSPASM [None]
  - RESPIRATORY FAILURE [None]
